FAERS Safety Report 4444414-2 (Version None)
Quarter: 2004Q3

REPORT INFORMATION
  Report Type: 
  Country: None (occurrence: None)
  Receive Date: 20040902
  Receipt Date: 20040823
  Transmission Date: 20050211
  Serious: Yes (Death)
  Sender: FDA-Public Use
  Company Number: USA-2004-0016551

PATIENT
  Age: 70 Year
  Sex: Female

DRUGS (1)
  1. MS CONTIN [Suspect]

REACTIONS (4)
  - CONSTIPATION [None]
  - FAECALOMA [None]
  - PROCEDURAL COMPLICATION [None]
  - THROMBOSIS [None]
